FAERS Safety Report 14412312 (Version 1)
Quarter: 2018Q1

REPORT INFORMATION
  Report Type: Spontaneous
  Country: US (occurrence: US)
  Receive Date: 20180118
  Receipt Date: 20180118
  Transmission Date: 20180509
  Serious: Yes (Other)
  Sender: FDA-Public Use
  Company Number: None

PATIENT
  Age: 35 Year
  Sex: Female
  Weight: 49.5 kg

DRUGS (3)
  1. COPAXONE [Suspect]
     Active Substance: GLATIRAMER ACETATE
     Indication: MULTIPLE SCLEROSIS
     Dosage: ?          QUANTITY:1 INJECTION(S);OTHER FREQUENCY:3 TIMES A WEEK;?
     Route: 058
     Dates: start: 20160901, end: 20180117
  2. TYLENOL [Concomitant]
     Active Substance: ACETAMINOPHEN
  3. EXCEDRIN [Concomitant]
     Active Substance: ACETAMINOPHEN\ASPIRIN\CAFFEINE

REACTIONS (6)
  - Migraine [None]
  - Piloerection [None]
  - Pyrexia [None]
  - Asthenia [None]
  - Feeling cold [None]
  - Chills [None]

NARRATIVE: CASE EVENT DATE: 20180115
